FAERS Safety Report 11627800 (Version 1)
Quarter: 2015Q4

REPORT INFORMATION
  Report Type: Spontaneous
  Country: US (occurrence: None)
  Receive Date: 20151013
  Receipt Date: 20151013
  Transmission Date: 20160304
  Serious: Yes (Death, Hospitalization)
  Sender: FDA-Public Use
  Company Number: None

PATIENT
  Age: 58 Year
  Sex: Male
  Weight: 63 kg

DRUGS (1)
  1. XELODA [Suspect]
     Active Substance: CAPECITABINE
     Dosage: DOSE REDUCED ON 9/30/15 TO 1300MG BID
     Dates: end: 20151002

REACTIONS (8)
  - Ventricular fibrillation [None]
  - Vomiting [None]
  - Tachycardia [None]
  - Hyperkalaemia [None]
  - Acidosis [None]
  - Renal failure [None]
  - Dehydration [None]
  - Malaise [None]

NARRATIVE: CASE EVENT DATE: 20151005
